FAERS Safety Report 11837378 (Version 1)
Quarter: 2015Q4

REPORT INFORMATION
  Report Type: Report from Study
  Country: NL (occurrence: NL)
  Receive Date: 20151215
  Receipt Date: 20151215
  Transmission Date: 20160305
  Serious: Yes (Other)
  Sender: FDA-Public Use
  Company Number: NL-AMGEN-NLDSL2015131599

PATIENT
  Age: 60 Year
  Sex: Female

DRUGS (8)
  1. XGEVA [Suspect]
     Active Substance: DENOSUMAB
     Indication: PRODUCT USED FOR UNKNOWN INDICATION
     Dosage: 120 MG, Q4WK
     Route: 058
     Dates: start: 20150730
  2. LISINOPRIL. [Concomitant]
     Active Substance: LISINOPRIL
     Dosage: UNK
     Dates: start: 20150630
  3. MACROGOL [Concomitant]
     Active Substance: POLYETHYLENE GLYCOLS
     Dosage: 1ZN, QD
     Dates: start: 20151207
  4. METOPROLOL [Concomitant]
     Active Substance: METOPROLOL
     Dosage: 50 MG, QD
     Route: 048
     Dates: start: 20150508
  5. OXYCODON [Concomitant]
     Active Substance: OXYCODONE
     Dosage: 5 MG, QD
     Dates: start: 20151207
  6. CALCIUMCARBONAT [Concomitant]
     Dosage: 500 MG (1.25G/440IU), QD
     Dates: start: 20150730
  7. HYDROCHLOORTHIAZIDE [Concomitant]
     Active Substance: HYDROCHLOROTHIAZIDE
     Dosage: 12.5 MG, QD
     Route: 048
     Dates: start: 20150508, end: 20151201
  8. KALIUMLOSARTAN [Concomitant]
     Dosage: 100 MG, QD
     Dates: start: 20150508

REACTIONS (6)
  - Musculoskeletal discomfort [Unknown]
  - Metastases to lung [Unknown]
  - Renal cell carcinoma [Unknown]
  - Muscular weakness [Unknown]
  - Metastases to bone [Unknown]
  - Pain [Unknown]

NARRATIVE: CASE EVENT DATE: 20150730
